FAERS Safety Report 6749100-1 (Version None)
Quarter: 2010Q2

REPORT INFORMATION
  Report Type: 
  Country: None (occurrence: None)
  Receive Date: 20100601
  Receipt Date: 20100521
  Transmission Date: 20101027
  Serious: Yes (Hospitalization)
  Sender: FDA-Public Use
  Company Number: JP-BRISTOL-MYERS SQUIBB COMPANY-15085293

PATIENT
  Age: 36 Year
  Sex: Female

DRUGS (4)
  1. ABILIFY [Suspect]
     Indication: SCHIZOPHRENIA
     Dosage: 10NOV-23NOV,12MG/D,14D 24NOV-18APR10,12MGBID,146D 12MG/D,19APRTO09MAY10,21D 12MG/BID,10MAY10-ONG
     Route: 048
     Dates: start: 20091110
  2. DEPROMEL [Concomitant]
     Dosage: TABS; REDUCED TO 50MG/DAY; THEN BACK TO 100MG/DAY.
     Route: 048
     Dates: start: 20090622
  3. RIVOTRIL [Concomitant]
     Dates: start: 20090622, end: 20100419
  4. TASMOLIN [Concomitant]
     Dates: start: 20090622, end: 20100419

REACTIONS (2)
  - ABORTION SPONTANEOUS [None]
  - PREGNANCY [None]
